FAERS Safety Report 20683225 (Version 6)
Quarter: 2022Q4

REPORT INFORMATION
  Report Type: Report from Study
  Country: JP (occurrence: JP)
  Receive Date: 20220407
  Receipt Date: 20221016
  Transmission Date: 20230113
  Serious: Yes (Death, Hospitalization, Other)
  Sender: FDA-Public Use
  Company Number: JP-NOVARTISPH-NVSJ2022JP005505

PATIENT
  Age: 88 Year
  Sex: Female

DRUGS (1)
  1. TABRECTA [Suspect]
     Active Substance: CAPMATINIB
     Indication: Non-small cell lung cancer stage I
     Dosage: 800 MG
     Route: 048
     Dates: start: 20210804, end: 20210827

REACTIONS (4)
  - Non-small cell lung cancer [Fatal]
  - Oedema [Not Recovered/Not Resolved]
  - Interstitial lung disease [Recovered/Resolved]
  - Decreased appetite [Recovering/Resolving]

NARRATIVE: CASE EVENT DATE: 20210820
